FAERS Safety Report 7836378-6 (Version None)
Quarter: 2011Q4

REPORT INFORMATION
  Report Type: 
  Country: None (occurrence: None)
  Receive Date: 20111024
  Receipt Date: 20110620
  Transmission Date: 20120403
  Serious: No
  Sender: FDA-Public Use
  Company Number: US-BAYER-2011-054023

PATIENT
  Age: 90 Year
  Sex: Female
  Weight: 61 kg

DRUGS (2)
  1. NAPROXEN SODIUM [Suspect]
     Indication: ARTHRITIS
     Dosage: 1 DF, BID
     Route: 048
     Dates: start: 20080101
  2. DIOVAN [Concomitant]

REACTIONS (1)
  - NO ADVERSE EVENT [None]
